FAERS Safety Report 14688915 (Version 1)
Quarter: 2018Q1

REPORT INFORMATION
  Report Type: Spontaneous
  Country: DE (occurrence: DE)
  Receive Date: 20180328
  Receipt Date: 20180328
  Transmission Date: 20180509
  Serious: Yes (Hospitalization)
  Sender: FDA-Public Use
  Company Number: DE-JNJFOC-20180331355

PATIENT
  Age: 29 Year
  Sex: Female

DRUGS (1)
  1. INFLIXIMAB, RECOMBINANT [Suspect]
     Active Substance: INFLIXIMAB
     Indication: COLITIS ULCERATIVE
     Route: 042
     Dates: start: 201409

REACTIONS (3)
  - Cytomegalovirus colitis [Recovered/Resolved]
  - Anaemia [Unknown]
  - Abdominal symptom [Unknown]

NARRATIVE: CASE EVENT DATE: 20160308
